FAERS Safety Report 16407294 (Version 2)
Quarter: 2019Q3

REPORT INFORMATION
  Report Type: Spontaneous
  Country: US (occurrence: US)
  Receive Date: 20190608
  Receipt Date: 20190703
  Transmission Date: 20191004
  Serious: No
  Sender: FDA-Public Use
  Company Number: US-JNJFOC-20190534758

PATIENT
  Age: 27 Year
  Sex: Male
  Weight: 59.02 kg

DRUGS (1)
  1. MINOXIDIL. [Suspect]
     Active Substance: MINOXIDIL
     Indication: ALOPECIA
     Dosage: DOSE: THE DROPPER LINE?FREQUENCY: ONCE A DAY BUT SOMETIMES TWICE A DAY
     Route: 061
     Dates: start: 20190429

REACTIONS (2)
  - Anxiety [Recovered/Resolved]
  - Inappropriate schedule of product administration [Unknown]

NARRATIVE: CASE EVENT DATE: 20190429
